FAERS Safety Report 7237707-7 (Version None)
Quarter: 2011Q1

REPORT INFORMATION
  Report Type: 
  Country: None (occurrence: None)
  Receive Date: 20110113
  Receipt Date: 20110105
  Transmission Date: 20110831
  Serious: Yes (Death, Hospitalization)
  Sender: FDA-Public Use
  Company Number: TAJPN-11-0016

PATIENT
  Age: 59 Year
  Sex: Female
  Weight: 47 kg

DRUGS (3)
  1. GLYCYRON (GLYCYRON) [Concomitant]
  2. ABRAXANE [Suspect]
     Indication: BREAST CANCER
     Dosage: 330 MG
     Dates: start: 20101019, end: 20101109
  3. DECADRON [Suspect]
     Indication: BREAST CANCER
     Dosage: 330 MG
     Dates: start: 20101019, end: 20101109

REACTIONS (3)
  - BREAST CANCER METASTATIC [None]
  - NEOPLASM MALIGNANT [None]
  - SOFT TISSUE INFECTION [None]
